FAERS Safety Report 5811682-1 (Version None)
Quarter: 2008Q3

REPORT INFORMATION
  Report Type: 
  Country: None (occurrence: None)
  Receive Date: 20080715
  Receipt Date: 20080715
  Transmission Date: 20090109
  Serious: Yes (Hospitalization)
  Sender: FDA-Public Use
  Company Number: None

PATIENT
  Age: 62 Year
  Sex: Male

DRUGS (1)
  1. TOPIRAMATE [Suspect]
     Dosage: 100 MG BID PO
     Route: 048
     Dates: start: 20080327, end: 20080625

REACTIONS (9)
  - ASTHENIA [None]
  - BACK PAIN [None]
  - CONFUSIONAL STATE [None]
  - DIARRHOEA [None]
  - DYSGEUSIA [None]
  - HYPERKALAEMIA [None]
  - NAUSEA [None]
  - NEPHRITIS [None]
  - RENAL FAILURE ACUTE [None]
